FAERS Safety Report 9682846 (Version 1)
Quarter: 2013Q4

REPORT INFORMATION
  Report Type: Report from Study
  Country: US (occurrence: US)
  Receive Date: 20131112
  Receipt Date: 20131112
  Transmission Date: 20140711
  Serious: Yes (Death)
  Sender: FDA-Public Use
  Company Number: PHEH2013US023555

PATIENT
  Sex: Male

DRUGS (18)
  1. AFINITOR [Suspect]
     Dosage: 10 MG, QD
     Route: 048
  2. ASPIRIN [Concomitant]
     Dosage: 81 MG
  3. TRICOR [Concomitant]
  4. TRILIPIX [Concomitant]
  5. CLONIDINE [Concomitant]
  6. VITAMIN B [Concomitant]
  7. CARVEDILOL [Concomitant]
  8. ACTOS [Concomitant]
  9. GLIMEPIRIDE [Concomitant]
  10. TOPROL XL [Concomitant]
  11. PLAVIX [Concomitant]
  12. LIPITOR [Concomitant]
  13. PHENYTOIN [Concomitant]
  14. FISH OIL [Concomitant]
  15. VENTOLIN HFA [Concomitant]
  16. LISINOPRIL [Concomitant]
  17. NATURAL VITAMIN D [Concomitant]
  18. FERREX [Concomitant]

REACTIONS (1)
  - Death [Fatal]
